FAERS Safety Report 4717257-X (Version None)
Quarter: 2005Q3

REPORT INFORMATION
  Report Type: 
  Country: None (occurrence: None)
  Receive Date: 20050715
  Receipt Date: 20050705
  Transmission Date: 20060218
  Serious: Yes (Hospitalization)
  Sender: FDA-Public Use
  Company Number: 200330

PATIENT
  Age: 31 Year
  Sex: Female
  Weight: 45 kg

DRUGS (5)
  1. AVONEX [Suspect]
     Indication: RELAPSING-REMITTING MULTIPLE SCLEROSIS
     Dosage: 30 UG;QW; IM
     Route: 030
     Dates: start: 20031001, end: 20050429
  2. AVONEX [Suspect]
     Indication: RELAPSING-REMITTING MULTIPLE SCLEROSIS
     Dosage: 30 UG;QW; IM
     Route: 030
     Dates: start: 20031001, end: 20050429
  3. SPASFON [Concomitant]
  4. VISCERALGINE [Concomitant]
  5. TRINORDIAL [Concomitant]

REACTIONS (8)
  - AMENORRHOEA [None]
  - CERVICITIS [None]
  - CERVIX DISORDER [None]
  - CONGENITAL ABSENCE OF BILE DUCTS [None]
  - METRORRHAGIA [None]
  - MULTIPLE SCLEROSIS RELAPSE [None]
  - OVARIAN CYST [None]
  - RAYNAUD'S PHENOMENON [None]
